FAERS Safety Report 13981062 (Version 1)
Quarter: 2017Q3

REPORT INFORMATION
  Report Type: Spontaneous
  Country: US (occurrence: US)
  Receive Date: 20170918
  Receipt Date: 20170918
  Transmission Date: 20171128
  Serious: No
  Sender: FDA-Public Use
  Company Number: US-TEVA-689217USA

PATIENT
  Sex: Female

DRUGS (2)
  1. BUPROPION. [Suspect]
     Active Substance: BUPROPION
  2. BUPROPION. [Suspect]
     Active Substance: BUPROPION
     Dosage: 300 AND ADDED 100 MG INCREASE AS 2ND DOSE DURING THE DAY

REACTIONS (2)
  - Condition aggravated [Unknown]
  - Drug ineffective [Unknown]
